FAERS Safety Report 12639020 (Version 2)
Quarter: 2016Q3

REPORT INFORMATION
  Report Type: Spontaneous
  Country: BG (occurrence: BG)
  Receive Date: 20160809
  Receipt Date: 20160816
  Transmission Date: 20161109
  Serious: Yes (Other)
  Sender: FDA-Public Use
  Company Number: PHHY2016BG105277

PATIENT
  Age: 74 Year
  Sex: Male

DRUGS (3)
  1. ACETAMINOPHEN. [Concomitant]
     Active Substance: ACETAMINOPHEN
     Indication: PRODUCT USED FOR UNKNOWN INDICATION
     Route: 065
  2. EXJADE [Suspect]
     Active Substance: DEFERASIROX
     Dosage: 10 MG/KG, QD
     Route: 048
     Dates: end: 20160717
  3. EXJADE [Suspect]
     Active Substance: DEFERASIROX
     Indication: REFRACTORY CYTOPENIA WITH UNILINEAGE DYSPLASIA
     Dosage: 5 MG/KG, QD (FOR 10 DAYS)
     Route: 048
     Dates: start: 20160626

REACTIONS (11)
  - Dyspnoea [Unknown]
  - Pyrexia [Unknown]
  - Hyperbilirubinaemia [Unknown]
  - Fatigue [Unknown]
  - Abdominal distension [Unknown]
  - Ascites [Unknown]
  - Swelling [Unknown]
  - Haemosiderosis [Unknown]
  - Chromaturia [Unknown]
  - Haemoglobin decreased [Unknown]
  - Peripheral swelling [Unknown]
